FAERS Safety Report 7087089-9 (Version None)
Quarter: 2010Q4

REPORT INFORMATION
  Report Type: 
  Country: None (occurrence: None)
  Receive Date: 20101106
  Receipt Date: 20101026
  Transmission Date: 20110411
  Serious: No
  Sender: FDA-Public Use
  Company Number: US-WYE-H18428910

PATIENT
  Sex: Female
  Weight: 72.64 kg

DRUGS (2)
  1. PREMARIN [Suspect]
     Indication: VULVOVAGINAL DRYNESS
     Dosage: ^SMALLEST AMOUNT^ DAILY AND AS NEEDED
     Route: 067
     Dates: start: 20101012, end: 20101026
  2. ATENOLOL [Concomitant]
     Indication: HYPERTENSION

REACTIONS (2)
  - VAGINAL SWELLING [None]
  - VULVOVAGINAL DISCOMFORT [None]
